FAERS Safety Report 23490542 (Version 1)
Quarter: 2024Q1

REPORT INFORMATION
  Report Type: Spontaneous
  Country: US (occurrence: None)
  Receive Date: 20240206
  Receipt Date: 20240206
  Transmission Date: 20240410
  Serious: No
  Sender: FDA-Public Use
  Company Number: US-ROCHE-3256692

PATIENT
  Sex: Male
  Weight: 86.26 kg

DRUGS (1)
  1. XOLAIR [Suspect]
     Active Substance: OMALIZUMAB
     Indication: Urticaria cholinergic
     Route: 030
     Dates: start: 20221216

REACTIONS (2)
  - Off label use [Unknown]
  - No adverse event [Unknown]
